FAERS Safety Report 8490092-5 (Version None)
Quarter: 2012Q2

REPORT INFORMATION
  Report Type: 
  Country: None (occurrence: None)
  Receive Date: 20120626
  Receipt Date: 20120618
  Transmission Date: 20120825
  Serious: Yes (Other)
  Sender: FDA-Public Use
  Company Number: USA/USA/12/0024749

PATIENT

DRUGS (2)
  1. SIMVASTATIN [Suspect]
     Indication: PRODUCT USED FOR UNKNOWN INDICATION
     Dosage: UNKNOWN
     Dates: start: 20010801, end: 20120101
  2. ZOCOR [Suspect]
     Indication: PRODUCT USED FOR UNKNOWN INDICATION
     Dosage: UNKNOWN

REACTIONS (5)
  - MENTAL DISORDER [None]
  - MUSCLE DISORDER [None]
  - ANHEDONIA [None]
  - RENAL DISORDER [None]
  - PAIN [None]
